FAERS Safety Report 12829225 (Version 1)
Quarter: 2016Q4

REPORT INFORMATION
  Report Type: Spontaneous
  Country: US (occurrence: US)
  Receive Date: 20161007
  Receipt Date: 20161007
  Transmission Date: 20170207
  Serious: No
  Sender: FDA-Public Use
  Company Number: US-SA-2016SA015536

PATIENT
  Age: 46 Year
  Sex: Female
  Weight: 43.54 kg

DRUGS (3)
  1. AUBAGIO [Suspect]
     Active Substance: TERIFLUNOMIDE
     Indication: MULTIPLE SCLEROSIS
     Route: 048
     Dates: start: 20151112
  2. AUBAGIO [Suspect]
     Active Substance: TERIFLUNOMIDE
     Indication: MULTIPLE SCLEROSIS
     Route: 048
     Dates: start: 20151112
  3. AMPYRA [Suspect]
     Active Substance: DALFAMPRIDINE
     Dosage: AMPYRA TABLET 10 MG
     Route: 065
     Dates: start: 20160229

REACTIONS (6)
  - Fall [Unknown]
  - Muscular weakness [Unknown]
  - Flushing [Unknown]
  - Alopecia [Unknown]
  - Headache [Unknown]
  - Balance disorder [Unknown]

NARRATIVE: CASE EVENT DATE: 201601
